FAERS Safety Report 8494641-2 (Version None)
Quarter: 2012Q3

REPORT INFORMATION
  Report Type: 
  Country: None (occurrence: None)
  Receive Date: 20120709
  Receipt Date: 20120628
  Transmission Date: 20120928
  Serious: Yes (Other)
  Sender: FDA-Public Use
  Company Number: CA-JNJFOC-20120614732

PATIENT
  Sex: Female
  Weight: 84 kg

DRUGS (6)
  1. REMICADE [Suspect]
     Route: 042
     Dates: start: 20110901
  2. LORAZEPAM [Concomitant]
     Route: 065
  3. REMICADE [Suspect]
     Indication: CROHN'S DISEASE
     Route: 042
     Dates: start: 20100528
  4. SERTRALIN HCL [Concomitant]
     Route: 065
  5. REMICADE [Suspect]
     Route: 042
     Dates: start: 20120628
  6. REMICADE [Suspect]
     Route: 042
     Dates: start: 20110628

REACTIONS (3)
  - PARAESTHESIA [None]
  - INFUSION RELATED REACTION [None]
  - DYSPNOEA [None]
